FAERS Safety Report 9108655 (Version 2)
Quarter: 2013Q1

REPORT INFORMATION
  Report Type: Report from Study
  Country: CA (occurrence: CA)
  Receive Date: 20130222
  Receipt Date: 20130305
  Transmission Date: 20140127
  Serious: Yes (Other)
  Sender: FDA-Public Use
  Company Number: CA-ABBOTT-13P-028-1051980-00

PATIENT
  Sex: Female
  Weight: 76.7 kg

DRUGS (2)
  1. HUMIRA [Suspect]
     Indication: CROHN^S DISEASE
     Dosage: LATEST DOSE: 13-FEB-2013
     Route: 058
     Dates: start: 20121204
  2. MIRTAZEPINE TEVA [Concomitant]
     Indication: PRODUCT USED FOR UNKNOWN INDICATION

REACTIONS (4)
  - Cyst [Unknown]
  - Anorectal disorder [Unknown]
  - Crohn^s disease [Unknown]
  - Anal abscess [Unknown]
